FAERS Safety Report 5001309-3 (Version None)
Quarter: 2006Q2

REPORT INFORMATION
  Report Type: 
  Country: None (occurrence: None)
  Receive Date: 20060512
  Receipt Date: 20050113
  Transmission Date: 20061013
  Serious: Yes (Hospitalization)
  Sender: FDA-Public Use
  Company Number: US-MERCK-0501USA02383

PATIENT
  Age: 42 Year
  Sex: Male
  Weight: 95 kg

DRUGS (3)
  1. VIOXX [Suspect]
     Indication: BACK PAIN
     Route: 048
     Dates: start: 20001201, end: 20020601
  2. VIOXX [Suspect]
     Route: 048
     Dates: start: 20020601
  3. ADVIL [Concomitant]
     Route: 048

REACTIONS (5)
  - ACNE [None]
  - CHEST PAIN [None]
  - GASTROOESOPHAGEAL REFLUX DISEASE [None]
  - HYPOAESTHESIA [None]
  - MYOCARDIAL INFARCTION [None]
